FAERS Safety Report 5162617-9 (Version None)
Quarter: 2006Q4

REPORT INFORMATION
  Report Type: 
  Country: None (occurrence: None)
  Receive Date: 20061201
  Receipt Date: 20061117
  Transmission Date: 20070319
  Serious: Yes (Death, Hospitalization)
  Sender: FDA-Public Use
  Company Number: AR-BRISTOL-MYERS SQUIBB COMPANY-13583323

PATIENT
  Age: 62 Year
  Sex: Female

DRUGS (6)
  1. CISPLATIN [Suspect]
     Indication: GASTRIC CANCER
     Route: 041
     Dates: start: 20061030, end: 20061030
  2. FLUOROURACIL [Suspect]
     Indication: GASTRIC CANCER
     Route: 041
     Dates: start: 20061030, end: 20061103
  3. LEVOTHYROXINE SODIUM [Concomitant]
     Indication: HYPOTHYROIDISM
     Route: 048
     Dates: start: 20000101
  4. METOCLOPRAMIDE [Concomitant]
     Indication: VOMITING
     Route: 048
     Dates: start: 20061027
  5. DEXAMETHASONE TAB [Concomitant]
     Indication: VOMITING
     Route: 048
     Dates: start: 20061027
  6. OMEPRAZOLE [Concomitant]
     Indication: GASTRITIS PROPHYLAXIS
     Route: 048
     Dates: start: 20061027

REACTIONS (2)
  - ASTHENIA [None]
  - SEPSIS [None]
